FAERS Safety Report 10521471 (Version 1)
Quarter: 2014Q4

REPORT INFORMATION
  Report Type: Report from Study
  Country: US (occurrence: US)
  Receive Date: 20141016
  Receipt Date: 20141016
  Transmission Date: 20150528
  Serious: No
  Sender: FDA-Public Use
  Company Number: US-009507513-2004-02-0202

PATIENT
  Age: 32 Year
  Sex: Female
  Weight: 85.28 kg

DRUGS (4)
  1. MINERALS (UNSPECIFIED) (+) VITAMINS (UNSPECIFIED) [Concomitant]
     Indication: PREGNANCY
     Dosage: DOSE: QD
     Dates: start: 200311
  2. PEGINTRON [Suspect]
     Active Substance: PEGINTERFERON ALFA-2B
     Indication: HEPATITIS C
     Dosage: 180 MICROGRAM, QW
     Route: 058
     Dates: start: 20021117, end: 20031017
  3. REBETOL [Suspect]
     Active Substance: RIBAVIRIN
     Indication: HEPATITIS C
     Dosage: 400 MG, QD
     Route: 048
     Dates: start: 20021110, end: 20031022
  4. SYNTHROID [Concomitant]
     Active Substance: LEVOTHYROXINE SODIUM
     Indication: HYPOTHYROIDISM
     Dosage: .135 MG, QD

REACTIONS (3)
  - Depression [Unknown]
  - Exposure during pregnancy [Unknown]
  - Rash [Unknown]

NARRATIVE: CASE EVENT DATE: 200211
